FAERS Safety Report 6806137-1 (Version None)
Quarter: 2010Q2

REPORT INFORMATION
  Report Type: 
  Country: None (occurrence: None)
  Receive Date: 20100629
  Receipt Date: 20080104
  Transmission Date: 20101027
  Serious: No
  Sender: FDA-Public Use
  Company Number: US-PFIZER INC-2008001708

PATIENT
  Sex: Male
  Weight: 88.636 kg

DRUGS (2)
  1. VIAGRA [Suspect]
     Indication: ERECTILE DYSFUNCTION
     Route: 048
     Dates: start: 20071101
  2. LEVITRA [Concomitant]

REACTIONS (2)
  - ARTHRALGIA [None]
  - MEDICATION ERROR [None]
